FAERS Safety Report 7897526-5 (Version None)
Quarter: 2011Q4

REPORT INFORMATION
  Report Type: 
  Country: None (occurrence: None)
  Receive Date: 20111107
  Receipt Date: 20111103
  Transmission Date: 20120403
  Serious: Yes (Other)
  Sender: FDA-Public Use
  Company Number: US-PFIZER INC-2011270406

PATIENT
  Sex: Male
  Weight: 90.703 kg

DRUGS (8)
  1. FLUCONAZOLE [Concomitant]
     Dosage: UNK
  2. NEURONTIN [Suspect]
     Dosage: 300 MG, 2X/DAY
     Route: 048
     Dates: start: 20110908, end: 20111001
  3. TRIMETHOPRIM [Concomitant]
     Indication: INFECTION
     Dosage: UNK
  4. LISINOPRIL [Concomitant]
     Dosage: UNK
  5. VITAMIN D [Concomitant]
     Dosage: UNK
  6. ISENTRESS [Concomitant]
     Indication: ACQUIRED IMMUNODEFICIENCY SYNDROME
     Dosage: UNK
  7. ACYCLOVIR [Concomitant]
     Indication: ACQUIRED IMMUNODEFICIENCY SYNDROME
     Dosage: UNK
  8. EPZICOM [Concomitant]
     Indication: ACQUIRED IMMUNODEFICIENCY SYNDROME
     Dosage: UNK

REACTIONS (5)
  - EYE MOVEMENT DISORDER [None]
  - COORDINATION ABNORMAL [None]
  - DIZZINESS [None]
  - MOOD ALTERED [None]
  - FATIGUE [None]
